FAERS Safety Report 19687912 (Version 1)
Quarter: 2021Q3

REPORT INFORMATION
  Report Type: Report from Study
  Country: CA (occurrence: CA)
  Receive Date: 20210811
  Receipt Date: 20210811
  Transmission Date: 20211014
  Serious: Yes (Other)
  Sender: FDA-Public Use
  Company Number: CA-ROCHE-2887593

PATIENT
  Age: 51 Year
  Sex: Female
  Weight: 97.2 kg

DRUGS (1)
  1. ATEZOLIZUMAB. [Suspect]
     Active Substance: ATEZOLIZUMAB
     Indication: NEOPLASM
     Route: 041
     Dates: start: 20210113

REACTIONS (3)
  - Pleural effusion [Unknown]
  - Hypoacusis [Unknown]
  - Hypophosphataemia [Unknown]
